FAERS Safety Report 8336692-4 (Version None)
Quarter: 2012Q2

REPORT INFORMATION
  Report Type: 
  Country: None (occurrence: None)
  Receive Date: 20120504
  Receipt Date: 20120426
  Transmission Date: 20120825
  Serious: Yes (Other)
  Sender: FDA-Public Use
  Company Number: US-BAYER-2012-041257

PATIENT
  Age: 46 Year
  Sex: Female

DRUGS (1)
  1. MIRENA [Suspect]
     Indication: CONTRACEPTION
     Dosage: 20 ?G/D, CONT
     Route: 015
     Dates: start: 20110911

REACTIONS (7)
  - FATIGUE [None]
  - FEELING ABNORMAL [None]
  - MYALGIA [None]
  - CONVULSION [None]
  - NAUSEA [None]
  - LOSS OF CONSCIOUSNESS [None]
  - SOMNOLENCE [None]
